FAERS Safety Report 17267635 (Version 2)
Quarter: 2020Q1

REPORT INFORMATION
  Report Type: Spontaneous
  Country: US (occurrence: US)
  Receive Date: 20200114
  Receipt Date: 20200218
  Transmission Date: 20200409
  Serious: No
  Sender: FDA-Public Use
  Company Number: US-PFIZER INC-2020015247

PATIENT
  Age: 58 Year
  Sex: Female

DRUGS (3)
  1. BENZYLPENICILLIN POTASSIUM [Suspect]
     Active Substance: PENICILLIN G POTASSIUM
     Dosage: 600000 IU/ML, UNK
  2. ASPIRIN. [Suspect]
     Active Substance: ASPIRIN
     Dosage: 325 MG, UNK
  3. BACTRIM [Suspect]
     Active Substance: SULFAMETHOXAZOLE\TRIMETHOPRIM
     Dosage: (400-80 MG TABLET)

REACTIONS (1)
  - Drug hypersensitivity [Unknown]
